FAERS Safety Report 6840940-7 (Version None)
Quarter: 2010Q3

REPORT INFORMATION
  Report Type: 
  Country: None (occurrence: None)
  Receive Date: 20100714
  Receipt Date: 20070619
  Transmission Date: 20110219
  Serious: No
  Sender: FDA-Public Use
  Company Number: US-PFIZER INC-2007052429

PATIENT
  Sex: Female
  Weight: 73.181 kg

DRUGS (3)
  1. CHANTIX [Suspect]
     Indication: SMOKING CESSATION THERAPY
     Route: 048
     Dates: start: 20070322, end: 20070601
  2. VALTREX [Concomitant]
  3. CENESTIN [Concomitant]

REACTIONS (4)
  - AGITATION [None]
  - FORMICATION [None]
  - IRRITABILITY [None]
  - ORAL HERPES [None]
